FAERS Safety Report 7361774-3 (Version None)
Quarter: 2011Q1

REPORT INFORMATION
  Report Type: 
  Country: None (occurrence: None)
  Receive Date: 20110318
  Receipt Date: 20110311
  Transmission Date: 20110831
  Serious: Yes (Hospitalization)
  Sender: FDA-Public Use
  Company Number: FR-MERCK-1103FRA00076

PATIENT
  Age: 70 Year
  Sex: Male
  Weight: 97 kg

DRUGS (4)
  1. HYDROCHLOROTHIAZIDE AND IRBESARTAN [Concomitant]
     Route: 048
     Dates: start: 19990101
  2. GLIPIZIDE [Concomitant]
     Indication: TYPE 2 DIABETES MELLITUS
     Route: 048
  3. JANUMET [Suspect]
     Indication: TYPE 2 DIABETES MELLITUS
     Route: 048
     Dates: start: 20100609, end: 20110106
  4. FUROSEMIDE [Concomitant]
     Route: 048
     Dates: start: 19990101

REACTIONS (1)
  - DIABETES MELLITUS [None]
